FAERS Safety Report 24000509 (Version 1)
Quarter: 2024Q2

REPORT INFORMATION
  Report Type: Spontaneous
  Country: CA (occurrence: CA)
  Receive Date: 20240621
  Receipt Date: 20240621
  Transmission Date: 20240716
  Serious: No
  Sender: FDA-Public Use
  Company Number: CA-JAZZ PHARMACEUTICALS-2024-CA-002318

PATIENT
  Age: 75 Year
  Sex: Female

DRUGS (3)
  1. ZEPZELCA [Suspect]
     Active Substance: LURBINECTEDIN
     Indication: Small cell lung cancer
     Dosage: UNK
     Dates: start: 202211
  2. ZEPZELCA [Suspect]
     Active Substance: LURBINECTEDIN
     Dosage: 6.64 MILLIGRAM
  3. ZEPZELCA [Suspect]
     Active Substance: LURBINECTEDIN
     Dosage: 1.28 MILLIGRAM

REACTIONS (1)
  - Extravasation [Unknown]

NARRATIVE: CASE EVENT DATE: 20240202
